FAERS Safety Report 20484620 (Version 2)
Quarter: 2022Q1

REPORT INFORMATION
  Report Type: Spontaneous
  Country: JP (occurrence: JP)
  Receive Date: 20220217
  Receipt Date: 20220304
  Transmission Date: 20220423
  Serious: Yes (Death, Hospitalization, Disabling)
  Sender: FDA-Public Use
  Company Number: JP-TEVA-2022-JP-2007136

PATIENT
  Age: 74 Year
  Sex: Male

DRUGS (8)
  1. PREDNISOLONE [Suspect]
     Active Substance: PREDNISOLONE
     Indication: Immune-mediated adverse reaction
     Dosage: 60 MILLIGRAM DAILY;
     Route: 065
  2. PREDNISOLONE [Suspect]
     Active Substance: PREDNISOLONE
     Dosage: 10 MILLIGRAM DAILY;
     Route: 065
  3. CLARITHROMYCIN [Suspect]
     Active Substance: CLARITHROMYCIN
     Indication: Osteomyelitis bacterial
     Dosage: 800 MILLIGRAM DAILY;
     Route: 065
  4. CLARITHROMYCIN [Suspect]
     Active Substance: CLARITHROMYCIN
     Indication: Mycobacterium abscessus infection
  5. AMIKACIN [Concomitant]
     Active Substance: AMIKACIN
     Indication: Osteomyelitis bacterial
     Dosage: 700 MILLIGRAM DAILY;
     Route: 065
  6. AMIKACIN [Concomitant]
     Active Substance: AMIKACIN
     Indication: Mycobacterium abscessus infection
  7. IMIPENEM [Concomitant]
     Active Substance: IMIPENEM
     Indication: Osteomyelitis bacterial
     Dosage: 1.5 GRAM DAILY;
     Route: 065
  8. IMIPENEM [Concomitant]
     Active Substance: IMIPENEM
     Indication: Mycobacterium abscessus infection

REACTIONS (11)
  - Osteomyelitis bacterial [Fatal]
  - Mycobacterium abscessus infection [Fatal]
  - Extradural abscess [Fatal]
  - Respiratory failure [Fatal]
  - Spinal cord paralysis [Not Recovered/Not Resolved]
  - Pathogen resistance [Unknown]
  - Spinal cord injury [Not Recovered/Not Resolved]
  - Spinal fracture [Not Recovered/Not Resolved]
  - Constipation [Unknown]
  - Abdominal distension [Unknown]
  - Decreased appetite [Unknown]
